FAERS Safety Report 4511006-6 (Version None)
Quarter: 2004Q4

REPORT INFORMATION
  Report Type: 
  Country: None (occurrence: None)
  Receive Date: 20040928
  Receipt Date: 20040621
  Transmission Date: 20050328
  Serious: No
  Sender: FDA-Public Use
  Company Number: 04P-163-0264369-00

PATIENT
  Age: 53 Year
  Sex: Female
  Weight: 45.3597 kg

DRUGS (6)
  1. HUMIRA [Suspect]
     Indication: RHEUMATOID ARTHRITIS
     Dosage: 40 MG, SUBCUTANEOUS
     Route: 058
     Dates: start: 20040525
  2. PREDNISONE [Concomitant]
  3. ESTROGEN NOS [Concomitant]
  4. PROGESTERONE [Concomitant]
  5. HYDROMORPHONE HYDROCHLORIDE [Concomitant]
  6. SERETIDE MITE [Concomitant]

REACTIONS (4)
  - ABDOMINAL PAIN [None]
  - BONE PAIN [None]
  - MENSTRUAL DISORDER [None]
  - SINUSITIS [None]
